FAERS Safety Report 26137811 (Version 1)
Quarter: 2025Q4

REPORT INFORMATION
  Report Type: Report from Study
  Country: US (occurrence: US)
  Receive Date: 20251209
  Receipt Date: 20251209
  Transmission Date: 20260118
  Serious: Yes (Other)
  Sender: ABBVIE
  Company Number: US-ABBVIE-6579202

PATIENT
  Age: 52 Year
  Sex: Female

DRUGS (1)
  1. RINVOQ [Suspect]
     Active Substance: UPADACITINIB
     Indication: Rheumatoid arthritis
     Route: 048
     Dates: start: 20250812

REACTIONS (6)
  - Atrial fibrillation [Unknown]
  - Tachycardia [Unknown]
  - Arthralgia [Unknown]
  - Pain in extremity [Unknown]
  - Sinus node dysfunction [Unknown]
  - Pain [Unknown]

NARRATIVE: CASE EVENT DATE: 20250101
